FAERS Safety Report 8405906-4 (Version None)
Quarter: 2012Q2

REPORT INFORMATION
  Report Type: 
  Country: None (occurrence: None)
  Receive Date: 20120604
  Receipt Date: 20120521
  Transmission Date: 20120825
  Serious: Yes (Hospitalization, Disabling, Other)
  Sender: FDA-Public Use
  Company Number: BR-RANBAXY-2012RR-56864

PATIENT
  Age: 14 Year
  Sex: Male

DRUGS (3)
  1. ISOTRETINOIN [Concomitant]
     Indication: PRODUCT USED FOR UNKNOWN INDICATION
     Dosage: 0.2 MG/KG/DAY
     Route: 065
  2. ISOTRETINOIN [Concomitant]
     Dosage: 0.5 MG/KG/DAY
     Route: 065
  3. ISOTRETINOIN [Suspect]
     Indication: ACNE
     Dosage: 0.5 MG/KG/DAY
     Route: 065

REACTIONS (2)
  - SACROILIITIS [None]
  - ACNE FULMINANS [None]
